FAERS Safety Report 18682381 (Version 2)
Quarter: 2020Q4

REPORT INFORMATION
  Report Type: Spontaneous
  Country: GB (occurrence: GB)
  Receive Date: 20201230
  Receipt Date: 20201231
  Transmission Date: 20210114
  Serious: Yes (Other)
  Sender: FDA-Public Use
  Company Number: GB-MYLANLABS-2020M1106195

PATIENT
  Age: 43 Year
  Sex: Male
  Weight: 83 kg

DRUGS (3)
  1. VOLTAROL [Concomitant]
     Active Substance: DICLOFENAC SODIUM
     Indication: ARTHRITIS
     Dosage: 100 MILLIGRAM, QD (DOSE: 100 MG)
     Route: 048
     Dates: start: 19980908
  2. MINOCIN [Suspect]
     Active Substance: MINOCYCLINE HYDROCHLORIDE
     Indication: ACNE
     Dosage: 100 MILLIGRAM, QD
     Route: 048
     Dates: start: 19980218, end: 19980604
  3. MINOCIN [Suspect]
     Active Substance: MINOCYCLINE HYDROCHLORIDE
     Dosage: 200 MILLIGRAM, QD
     Route: 048
     Dates: start: 19980604, end: 19980910

REACTIONS (10)
  - Autoimmune hepatitis [Unknown]
  - Muscular weakness [Unknown]
  - Periarthritis [Unknown]
  - Arthritis [Unknown]
  - Hiatus hernia [Unknown]
  - Oxidative stress [Unknown]
  - Functional gastrointestinal disorder [Unknown]
  - Bladder disorder [Unknown]
  - Epicondylitis [Unknown]
  - Arthralgia [Unknown]

NARRATIVE: CASE EVENT DATE: 199804
